FAERS Safety Report 7134334-7 (Version None)
Quarter: 2010Q4

REPORT INFORMATION
  Report Type: 
  Country: None (occurrence: None)
  Receive Date: 20101203
  Receipt Date: 20101018
  Transmission Date: 20110411
  Serious: Yes (Hospitalization, Other)
  Sender: FDA-Public Use
  Company Number: CA-ELI_LILLY_AND_COMPANY-CA201010003817

PATIENT
  Sex: Male

DRUGS (9)
  1. ZYPREXA [Suspect]
     Indication: BIPOLAR DISORDER
     Dosage: 10 MG, UNKNOWN
     Route: 065
  2. ZYPREXA [Suspect]
     Dosage: 15 MG, DAILY (1/D)
     Route: 065
  3. ZYPREXA [Suspect]
     Dosage: 20 MG, DAILY (1/D)
     Route: 065
  4. EPIVAL [Concomitant]
     Dosage: UNK, UNKNOWN
     Route: 065
  5. ATIVAN [Concomitant]
     Dosage: UNK, UNKNOWN
     Route: 065
  6. LAMICTAL [Concomitant]
     Dosage: 25 MG, DAILY (1/D)
     Route: 065
  7. LAMICTAL [Concomitant]
     Dosage: 25 MG, DAILY (1/D)
     Route: 065
  8. LAMICTAL [Concomitant]
     Dosage: 75 MG, DAILY (1/D)
     Route: 065
  9. LAMICTAL [Concomitant]
     Dosage: 100 MG, DAILY (1/D)
     Route: 065

REACTIONS (5)
  - ABDOMINAL ABSCESS [None]
  - HAEMORRHAGIC ASCITES [None]
  - PANCREATITIS NECROTISING [None]
  - PERITONITIS [None]
  - SEPTIC SHOCK [None]
